FAERS Safety Report 7278708-2 (Version None)
Quarter: 2011Q1

REPORT INFORMATION
  Report Type: 
  Country: None (occurrence: None)
  Receive Date: 20110207
  Receipt Date: 20110125
  Transmission Date: 20110831
  Serious: Yes (Other)
  Sender: FDA-Public Use
  Company Number: PHHY2011TR08203

PATIENT

DRUGS (3)
  1. ADRIAMYCIN PFS [Suspect]
     Route: 064
  2. FLUOROURACIL [Suspect]
     Route: 064
  3. CYCLOPHOSPHAMIDE [Suspect]
     Route: 064

REACTIONS (2)
  - PREMATURE BABY [None]
  - DRUG EXPOSURE DURING PREGNANCY [None]
